FAERS Safety Report 5485377-0 (Version None)
Quarter: 2007Q4

REPORT INFORMATION
  Report Type: 
  Country: None (occurrence: None)
  Receive Date: 20071015
  Receipt Date: 20071010
  Transmission Date: 20080405
  Serious: Yes (Hospitalization, Other)
  Sender: FDA-Public Use
  Company Number: US-BRISTOL-MYERS SQUIBB COMPANY-13590286

PATIENT
  Age: 64 Year
  Sex: Female

DRUGS (12)
  1. CYTOXAN [Suspect]
     Indication: BREAST CANCER
     Dosage: INITIAL DOSE 600MG/3 DOSES, DOSE REDUCED TO 450 MG ON 06-NOV-2006 25-SEP-2006-ONGOING
     Route: 042
     Dates: start: 20061023, end: 20061023
  2. ADRIAMYCIN PFS [Suspect]
     Indication: BREAST CANCER
     Dosage: INITIAL DOSE 100MG/3 DOSES, DOSE REDUCED TO 45 MG/M2 25-SEP-2006-ONGOING
     Route: 042
     Dates: start: 20061023, end: 20061023
  3. BEVACIZUMAB [Suspect]
     Indication: BREAST CANCER
     Dosage: 25-SEP-2006-ONGOING, 3 DOSES
     Route: 042
     Dates: start: 20061023, end: 20061023
  4. NEULASTA [Suspect]
     Indication: BREAST CANCER
     Dosage: 26-SEP-2006-ONGOING, DAILY DOSE 6 MG/3 DOSES
     Route: 042
     Dates: start: 20061024, end: 20061024
  5. PRIMAXIN [Suspect]
     Indication: FEBRILE NEUTROPENIA
     Route: 042
     Dates: start: 20061031
  6. LIPITOR [Concomitant]
     Indication: BLOOD CHOLESTEROL INCREASED
     Route: 048
     Dates: start: 20030101
  7. CELEBREX [Concomitant]
     Indication: ARTHRITIS
     Route: 048
     Dates: start: 20020101
  8. COZAAR [Concomitant]
     Indication: HYPERTENSION
     Route: 048
     Dates: start: 20020101
  9. HYDROCHLOROTHIAZIDE [Concomitant]
     Indication: HYPERTENSION
     Route: 048
     Dates: start: 20040101
  10. ASPIRIN [Concomitant]
     Indication: PROPHYLAXIS
     Route: 048
     Dates: start: 20020101
  11. EFFEXOR [Concomitant]
     Indication: HOT FLUSH
     Route: 048
     Dates: start: 20061009
  12. ARANESP [Concomitant]
     Indication: ANAEMIA
     Route: 058
     Dates: start: 20061009

REACTIONS (2)
  - FEBRILE NEUTROPENIA [None]
  - PANCYTOPENIA [None]
